FAERS Safety Report 14226240 (Version 1)
Quarter: 2017Q4

REPORT INFORMATION
  Report Type: Spontaneous
  Country: US (occurrence: JP)
  Receive Date: 20171127
  Receipt Date: 20171127
  Transmission Date: 20180321
  Serious: Yes (Other)
  Sender: FDA-Public Use
  Company Number: US-SUNOVION-2017SUN005073

PATIENT
  Sex: Female
  Weight: 32 kg

DRUGS (3)
  1. INDACATEROL AND GLYCOPYRROLATE [Suspect]
     Active Substance: GLYCOPYRROLATE\INDACATEROL MALEATE
     Indication: RESPIRATORY DISORDER
     Dosage: 1 DF, QD
     Route: 055
     Dates: start: 20171109, end: 20171112
  2. INDACATEROL AND GLYCOPYRROLATE [Suspect]
     Active Substance: GLYCOPYRROLATE\INDACATEROL MALEATE
     Indication: PRODUCTIVE COUGH
  3. INDACATEROL [Suspect]
     Active Substance: INDACATEROL
     Indication: RESPIRATORY DISORDER
     Dosage: UNK
     Route: 055

REACTIONS (5)
  - Product use in unapproved indication [Unknown]
  - Pyrexia [Recovering/Resolving]
  - Productive cough [Recovering/Resolving]
  - Nausea [Recovering/Resolving]
  - Pneumonia [Recovering/Resolving]

NARRATIVE: CASE EVENT DATE: 2016
